FAERS Safety Report 6835641-5 (Version None)
Quarter: 2010Q2

REPORT INFORMATION
  Report Type: 
  Country: None (occurrence: None)
  Receive Date: 20100520
  Receipt Date: 20100331
  Transmission Date: 20101027
  Serious: Yes (Other)
  Sender: FDA-Public Use
  Company Number: 2009220937

PATIENT
  Age: 64 Year
  Sex: Female
  Weight: 104 kg

DRUGS (8)
  1. PROVERA [Suspect]
     Indication: HORMONE REPLACEMENT THERAPY
     Dosage: 10 MG, ORAL
     Route: 048
     Dates: start: 19910101, end: 20010101
  2. PREMARIN [Suspect]
     Indication: HORMONE REPLACEMENT THERAPY
     Dosage: 0.625 MG
     Dates: start: 19910101, end: 20010101
  3. PREMPRO [Suspect]
     Indication: HORMONE REPLACEMENT THERAPY
  4. VALSARTAN [Concomitant]
  5. AMARYL [Concomitant]
  6. LIPITOR [Concomitant]
  7. PROZAC [Concomitant]
  8. ASPIRIN [Concomitant]

REACTIONS (1)
  - BREAST CANCER FEMALE [None]
